FAERS Safety Report 8290282 (Version 3)
Quarter: 2013Q1

REPORT INFORMATION
  Report Type: Report from Study
  Country: JP (occurrence: JP)
  Receive Date: 20111214
  Receipt Date: 20130103
  Transmission Date: 20140127
  Serious: Yes (Hospitalization, Other)
  Sender: FDA-Public Use
  Company Number: JP-GENZYME-THYM-1002966

PATIENT
  Age: 6 Year
  Sex: Male
  Weight: 23 kg

DRUGS (15)
  1. THYMOGLOBULIN [Suspect]
     Indication: MYELODYSPLASTIC SYNDROME
     Dosage: 75 MG, QD
     Route: 065
     Dates: start: 20100816, end: 20100820
  2. THYMOGLOBULIN [Suspect]
     Indication: BONE MARROW CONDITIONING REGIMEN
     Dosage: 30 MG, QD
     Route: 042
     Dates: start: 20110519, end: 20110522
  3. FLUDARABINE PHOSPHATE [Concomitant]
     Indication: MYELODYSPLASTIC SYNDROME
     Dosage: UNK
     Route: 065
     Dates: start: 20110519, end: 20110522
  4. CYCLOPHOSPHAMIDE [Concomitant]
     Indication: MYELODYSPLASTIC SYNDROME
     Dosage: UNK
     Route: 065
     Dates: start: 20110519, end: 20110522
  5. METHYLPREDNISOLONE [Concomitant]
     Indication: PREMEDICATION
     Dosage: UNK
     Route: 065
     Dates: start: 20110519, end: 20110529
  6. PREDNISOLONE [Concomitant]
     Indication: PREMEDICATION
     Dosage: UNK
     Route: 065
     Dates: start: 20110530, end: 20110604
  7. PREDNISOLONE [Concomitant]
     Dosage: UNK
     Dates: start: 20110605, end: 20110610
  8. GANCICLOVIR [Concomitant]
     Indication: INFECTION PROPHYLAXIS
     Dosage: UNK
     Route: 065
     Dates: start: 20110815, end: 20110916
  9. TACROLIMUS [Concomitant]
     Indication: PROPHYLAXIS AGAINST GRAFT VERSUS HOST DISEASE
     Dosage: UNK
     Route: 065
     Dates: start: 20110523
  10. MEROPENEM TRIHYDRATE [Concomitant]
     Indication: INFECTION PROPHYLAXIS
     Dosage: UNK
     Route: 065
     Dates: start: 20110517, end: 20110608
  11. LENOGRASTIM [Concomitant]
     Indication: MYELODYSPLASTIC SYNDROME
     Dosage: UNK
     Route: 065
     Dates: start: 20110525, end: 20110613
  12. MICAFUNGIN SODIUM [Concomitant]
     Indication: INFECTION PROPHYLAXIS
     Dosage: UNK
     Route: 065
     Dates: start: 20110606, end: 20110607
  13. PH4 TREATED ACIDIC HUMAN NORMAL IMMUNOGLOBULIN [Concomitant]
     Indication: INFECTION PROPHYLAXIS
     Dosage: UNK
     Route: 065
     Dates: start: 20110525, end: 20111101
  14. FLUCONAZOLE [Concomitant]
     Indication: INFECTION PROPHYLAXIS
     Dosage: UNK
     Route: 065
     Dates: start: 20100614
  15. SULFAMETHOPRIM [Concomitant]
     Indication: INFECTION PROPHYLAXIS
     Dosage: UNK
     Route: 065
     Dates: start: 20100614

REACTIONS (7)
  - Graft versus host disease in skin [Recovered/Resolved]
  - Epstein-Barr virus antigen positive [Recovered/Resolved]
  - Cytomegalovirus test positive [Recovered/Resolved]
  - Pancytopenia [Not Recovered/Not Resolved]
  - Sepsis [Recovered/Resolved]
  - Infection [Recovered/Resolved]
  - Thrombin-antithrombin III complex abnormal [Recovered/Resolved]
